FAERS Safety Report 20641358 (Version 1)
Quarter: 2022Q1

REPORT INFORMATION
  Report Type: Other
  Country: DE (occurrence: None)
  Receive Date: 20220328
  Receipt Date: 20220328
  Transmission Date: 20220423
  Serious: Yes (Death)
  Sender: FDA-Public Use
  Company Number: DE-ROCHE-3057923

PATIENT
  Age: 63 Year
  Sex: Female

DRUGS (4)
  1. RITUXIMAB [Suspect]
     Active Substance: RITUXIMAB
     Indication: Encephalitis autoimmune
     Route: 065
  2. LEVETIRACETAM [Concomitant]
     Active Substance: LEVETIRACETAM
  3. ACYCLOVIR [Concomitant]
     Active Substance: ACYCLOVIR
     Route: 042
  4. METHYLPREDNISOLONE [Concomitant]
     Active Substance: METHYLPREDNISOLONE
     Indication: Encephalitis autoimmune
     Dosage: HIGH DOSE WITH ORAL TAPERING-OFF PHASE
     Route: 042

REACTIONS (4)
  - Encephalitis autoimmune [Fatal]
  - Bronchial carcinoma [Fatal]
  - Off label use [Fatal]
  - Urinary tract infection [Unknown]
